FAERS Safety Report 11448797 (Version 1)
Quarter: 2015Q3

REPORT INFORMATION
  Report Type: Spontaneous
  Country: PL (occurrence: PL)
  Receive Date: 20150902
  Receipt Date: 20150902
  Transmission Date: 20151125
  Serious: Yes (Other)
  Sender: FDA-Public Use
  Company Number: PL-GLAXOSMITHKLINE-PL2015122367

PATIENT
  Age: 44 Year
  Sex: Female
  Weight: 55 kg

DRUGS (4)
  1. XGEVA [Concomitant]
     Active Substance: DENOSUMAB
     Route: 058
     Dates: start: 201402
  2. METOCARD ZK [Concomitant]
     Active Substance: METOPROLOL TARTRATE
     Indication: PROPHYLAXIS
     Route: 048
     Dates: start: 201401
  3. TYVERB [Suspect]
     Active Substance: LAPATINIB
     Indication: BREAST CANCER
     Dosage: 1000 MG /DAY FOR 21 DAYS. DRUG IS STILL TAKEN (DATE 24.04.2015)
     Route: 048
     Dates: start: 201401
  4. LAMETTA [Concomitant]
     Route: 048
     Dates: start: 201502

REACTIONS (2)
  - Neutropenia [Recovering/Resolving]
  - Leukopenia [Recovering/Resolving]

NARRATIVE: CASE EVENT DATE: 20150413
